FAERS Safety Report 13069424 (Version 2)
Quarter: 2017Q1

REPORT INFORMATION
  Report Type: Spontaneous
  Country: JP (occurrence: JP)
  Receive Date: 20161228
  Receipt Date: 20170113
  Transmission Date: 20170428
  Serious: Yes (Other)
  Sender: FDA-Public Use
  Company Number: JP-ABBVIE-16P-087-1823578-00

PATIENT
  Age: 66 Year
  Sex: Male

DRUGS (3)
  1. LEUPLIN [Suspect]
     Active Substance: LEUPROLIDE ACETATE
     Indication: PROSTATE CANCER
     Dosage: UNK
     Route: 058
     Dates: start: 201311, end: 201401
  2. TAMOXIFEN [Suspect]
     Active Substance: TAMOXIFEN
     Indication: BREAST CANCER MALE
     Dosage: UNK
     Route: 048
     Dates: start: 201311, end: 201401
  3. BICALUTAMIDE. [Suspect]
     Active Substance: BICALUTAMIDE
     Indication: PROSTATE CANCER
     Dosage: UNK
     Route: 048
     Dates: start: 201311, end: 201401

REACTIONS (3)
  - Hepatic function abnormal [Recovering/Resolving]
  - Orchidectomy [Unknown]
  - Lipids abnormal [Recovering/Resolving]

NARRATIVE: CASE EVENT DATE: 201401
